FAERS Safety Report 7191504-X (Version None)
Quarter: 2010Q4

REPORT INFORMATION
  Report Type: 
  Country: None (occurrence: None)
  Receive Date: 20101223
  Receipt Date: 20101220
  Transmission Date: 20110411
  Serious: Yes (Hospitalization, Other)
  Sender: FDA-Public Use
  Company Number: GB-ROCHE-725011

PATIENT
  Sex: Female

DRUGS (7)
  1. ROACTEMRA [Suspect]
     Route: 042
     Dates: start: 20100901, end: 20100927
  2. SULPHASALAZINE [Concomitant]
     Route: 048
  3. DICLOFENAC [Concomitant]
     Route: 048
  4. LEFLUNOMIDE [Concomitant]
     Route: 048
  5. PREDNISOLONE [Concomitant]
     Route: 048
  6. AMLODIPINE [Concomitant]
     Indication: HYPERTENSION
  7. MORPHINE [Concomitant]

REACTIONS (3)
  - ARTHRITIS [None]
  - RASH [None]
  - SYNOVITIS [None]
